FAERS Safety Report 12139933 (Version 1)
Quarter: 2016Q1

REPORT INFORMATION
  Report Type: Spontaneous
  Country: US (occurrence: None)
  Receive Date: 20160302
  Receipt Date: 20160302
  Transmission Date: 20160526
  Serious: No
  Sender: FDA-Public Use
  Company Number: None

PATIENT
  Sex: Female

DRUGS (1)
  1. IBRANCE [Suspect]
     Active Substance: PALBOCICLIB
     Indication: NEOPLASM MALIGNANT
     Dosage: 75MG EVERY 3 DAYS PO
     Route: 048
     Dates: start: 20150903, end: 201602

REACTIONS (3)
  - Heart rate increased [None]
  - Diarrhoea [None]
  - Drug ineffective [None]
